FAERS Safety Report 5348513-2 (Version None)
Quarter: 2007Q2

REPORT INFORMATION
  Report Type: 
  Country: None (occurrence: None)
  Receive Date: 20070605
  Receipt Date: 20070521
  Transmission Date: 20071010
  Serious: Yes (Hospitalization, Other)
  Sender: FDA-Public Use
  Company Number: 100#08#2007-01757

PATIENT
  Age: 37 Year
  Sex: Male

DRUGS (3)
  1. METHOTREXATE [Suspect]
     Indication: PSORIASIS
     Dosage: 12.5 MG (ONCE WEEKLY) --
  2. METHOTREXATE [Suspect]
     Indication: PSORIATIC ARTHROPATHY
     Dosage: 12.5 MG (ONCE WEEKLY) --
  3. SULFASALAZINE [Concomitant]

REACTIONS (1)
  - CUTANEOUS LEISHMANIASIS [None]
